FAERS Safety Report 11389525 (Version 2)
Quarter: 2015Q4

REPORT INFORMATION
  Report Type: Spontaneous
  Country: ES (occurrence: ES)
  Receive Date: 20150817
  Receipt Date: 20151015
  Transmission Date: 20160304
  Serious: Yes (Life-Threatening, Hospitalization)
  Sender: FDA-Public Use
  Company Number: ES-IGSA-ES-AGEMED-105333438

PATIENT
  Age: 66 Year
  Sex: Female
  Weight: 56 kg

DRUGS (2)
  1. FLEBOGAMMA DIF [Interacting]
     Active Substance: HUMAN IMMUNOGLOBULIN G
     Indication: DEMYELINATING POLYNEUROPATHY
     Route: 042
     Dates: start: 20150727, end: 20150729
  2. PLANGAMMA 100 MG/ML, SOLUCI?N PARA PERFUSI?N [Suspect]
     Active Substance: HUMAN IMMUNOGLOBULIN G
     Indication: DEMYELINATING POLYNEUROPATHY
     Route: 042
     Dates: start: 20150727, end: 20150729

REACTIONS (5)
  - Hepatic encephalopathy [Recovered/Resolved with Sequelae]
  - Dyspnoea [Recovered/Resolved with Sequelae]
  - Hypersensitivity [None]
  - Hyponatraemia [Recovered/Resolved]
  - Hypercapnic coma [Recovered/Resolved with Sequelae]

NARRATIVE: CASE EVENT DATE: 20150727
